FAERS Safety Report 4718817-2 (Version None)
Quarter: 2005Q3

REPORT INFORMATION
  Report Type: 
  Country: None (occurrence: None)
  Receive Date: 20050719
  Receipt Date: 20050630
  Transmission Date: 20060218
  Serious: Yes (Other)
  Sender: FDA-Public Use
  Company Number: USA0507101810

PATIENT
  Age: 78 Year
  Sex: Female

DRUGS (1)
  1. FORTEO [Suspect]
     Dates: start: 20050630

REACTIONS (4)
  - ANEURYSM [None]
  - BACK PAIN [None]
  - MUSCLE SPASMS [None]
  - SPINAL COMPRESSION FRACTURE [None]
